FAERS Safety Report 6389226-8 (Version None)
Quarter: 2009Q4

REPORT INFORMATION
  Report Type: 
  Country: None (occurrence: None)
  Receive Date: 20091006
  Receipt Date: 20090924
  Transmission Date: 20100525
  Serious: Yes (Other)
  Sender: FDA-Public Use
  Company Number: PHHY2009BR20654

PATIENT
  Age: 60 Year
  Sex: Male
  Weight: 115 kg

DRUGS (2)
  1. DIOVAN HCT [Suspect]
     Indication: HYPERTENSION
     Dosage: 1 DF (160/25 MG) DAILY
     Route: 048
     Dates: start: 20070501
  2. FLUOXETINA [Concomitant]
     Indication: DEPRESSION
     Dosage: 2 DF (20 MG) DAILY
     Route: 048
     Dates: start: 20070501

REACTIONS (1)
  - PROSTATOMEGALY [None]
